FAERS Safety Report 4633254-7 (Version None)
Quarter: 2005Q2

REPORT INFORMATION
  Report Type: 
  Country: None (occurrence: None)
  Receive Date: 20050408
  Receipt Date: 20050311
  Transmission Date: 20051028
  Serious: Yes (Other)
  Sender: FDA-Public Use
  Company Number: 200410608BFR

PATIENT
  Age: 52 Year
  Sex: Male
  Weight: 91 kg

DRUGS (4)
  1. LEVITRA [Suspect]
     Indication: ERECTILE DYSFUNCTION
     Dosage: 5 MG, TOTAL DAILY, ORAL
     Route: 048
     Dates: start: 20041109
  2. HYDROCORTISONE [Concomitant]
  3. LEVOTHYROX [Concomitant]
  4. ANDROTARDYL [Concomitant]

REACTIONS (7)
  - DRUG INEFFECTIVE [None]
  - HYPERTENSION [None]
  - LOSS OF CONSCIOUSNESS [None]
  - OCULAR HYPERAEMIA [None]
  - PURULENCE [None]
  - RASH PUSTULAR [None]
  - VISUAL DISTURBANCE [None]
